FAERS Safety Report 7766585-2 (Version None)
Quarter: 2011Q3

REPORT INFORMATION
  Report Type: 
  Country: None (occurrence: None)
  Receive Date: 20110922
  Receipt Date: 20110909
  Transmission Date: 20111222
  Serious: Yes (Other)
  Sender: FDA-Public Use
  Company Number: TR-RANBAXY-2011R1-47697

PATIENT
  Age: 28 Year
  Sex: Male

DRUGS (2)
  1. RANITIDINE [Suspect]
     Indication: URTICARIA
     Dosage: UNK
     Route: 042
  2. PHENIRAMINE 45 MG IN 100 ML SODIUM CHLORIDE [Concomitant]
     Indication: URTICARIA
     Dosage: UNK
     Route: 065

REACTIONS (2)
  - HYPOTENSION [None]
  - BRADYCARDIA [None]
